FAERS Safety Report 20245888 (Version 1)
Quarter: 2021Q4

REPORT INFORMATION
  Report Type: Spontaneous
  Country: DE (occurrence: DE)
  Receive Date: 20211229
  Receipt Date: 20211229
  Transmission Date: 20220303
  Serious: Yes (Hospitalization, Other)
  Sender: FDA-Public Use
  Company Number: None

PATIENT
  Age: 29 Year
  Sex: Female

DRUGS (7)
  1. FOLLITROPIN BETA [Suspect]
     Active Substance: FOLLITROPIN BETA
     Indication: Assisted reproductive technology
     Dosage: 275 INTERNATIONAL UNIT, QD
     Dates: start: 20211020
  2. FOLLITROPIN BETA [Suspect]
     Active Substance: FOLLITROPIN BETA
     Dosage: 300 INTERNATIONAL UNIT, QD
     Dates: start: 20211016, end: 20211019
  3. FOLLITROPIN BETA [Suspect]
     Active Substance: FOLLITROPIN BETA
     Dosage: 300 INTERNATIONAL UNIT, QD
     Dates: start: 20211021, end: 20211025
  4. GONADOTROPHIN, CHORIONIC [Suspect]
     Active Substance: GONADOTROPHIN, CHORIONIC
     Indication: Assisted reproductive technology
     Dosage: 10000 INTERNATIONAL UNIT, QD
     Dates: start: 20211027
  5. NAFARELIN ACETATE [Suspect]
     Active Substance: NAFARELIN ACETATE
     Indication: Assisted reproductive technology
     Dosage: 0.2 MILLIGRAM, QD
     Dates: start: 20211026
  6. NAFARELIN ACETATE [Suspect]
     Active Substance: NAFARELIN ACETATE
     Dosage: 0.4 MILLIGRAM, QD
     Dates: start: 20211002, end: 20211025
  7. PROGESTERONE [Suspect]
     Active Substance: PROGESTERONE
     Indication: Assisted reproductive technology
     Dosage: 600 MG DAILY STARTING 29-OCT-2021
     Dates: start: 20211029

REACTIONS (3)
  - Abdominal discomfort [Recovered/Resolved]
  - Ovarian abscess [Recovered/Resolved]
  - Vulvovaginal discomfort [Recovered/Resolved]

NARRATIVE: CASE EVENT DATE: 20211030
